FAERS Safety Report 9781789 (Version 2)
Quarter: 2014Q1

REPORT INFORMATION
  Report Type: Spontaneous
  Country: GB (occurrence: GB)
  Receive Date: 20131225
  Receipt Date: 20140321
  Transmission Date: 20141002
  Serious: Yes (Hospitalization, Disabling)
  Sender: FDA-Public Use
  Company Number: GB-AMGEN-GBRSP2013089386

PATIENT
  Age: 35 Year
  Sex: Female

DRUGS (6)
  1. PROLIA [Suspect]
     Indication: OSTEOPOROSIS
     Dosage: 60 MG, UNK
     Route: 058
     Dates: start: 201305, end: 201305
  2. AMLODIPINE [Concomitant]
  3. FERROUS FUMARATE [Concomitant]
     Indication: IRON DEFICIENCY ANAEMIA
     Dosage: 600 MG, QD
     Route: 048
  4. LANSOPRAZOLE [Concomitant]
     Indication: PROPHYLAXIS
     Dosage: 15 MG, UNK
     Route: 048
  5. PREDNISOLONE [Concomitant]
     Indication: PSORIATIC ARTHROPATHY
     Dosage: 15 MG, UNK
     Route: 048
  6. SIMVASTATIN [Concomitant]

REACTIONS (7)
  - Cerebrovascular accident [Recovering/Resolving]
  - Aphasia [Unknown]
  - VIIth nerve paralysis [Unknown]
  - Ischaemic stroke [Unknown]
  - Dysarthria [Unknown]
  - Strabismus [Unknown]
  - Muscular weakness [Recovered/Resolved]
